FAERS Safety Report 5985091-9 (Version None)
Quarter: 2008Q4

REPORT INFORMATION
  Report Type: 
  Country: None (occurrence: None)
  Receive Date: 20081208
  Receipt Date: 20080606
  Transmission Date: 20090506
  Serious: Yes (Hospitalization)
  Sender: FDA-Public Use
  Company Number: US-AMGEN-QUU280606

PATIENT
  Sex: Female

DRUGS (3)
  1. ENBREL [Suspect]
     Indication: RHEUMATOID ARTHRITIS
     Route: 058
     Dates: start: 20050701
  2. METHOTREXATE [Concomitant]
     Route: 048
  3. METHOTREXATE [Concomitant]
     Route: 048

REACTIONS (4)
  - ARTHRALGIA [None]
  - LUNG NEOPLASM MALIGNANT [None]
  - MUSCULOSKELETAL STIFFNESS [None]
  - WHITE BLOOD CELL COUNT DECREASED [None]
